FAERS Safety Report 9639829 (Version 1)
Quarter: 2013Q4

REPORT INFORMATION
  Report Type: Spontaneous
  Country: US (occurrence: None)
  Receive Date: 20131021
  Receipt Date: 20131021
  Transmission Date: 20140711
  Serious: No
  Sender: FDA-Public Use
  Company Number: None

PATIENT
  Age: 34 Year
  Sex: Male
  Weight: 65.77 kg

DRUGS (1)
  1. AMOXICILLIN [Suspect]
     Indication: SINUSITIS
     Dosage: TAKEN BY MOUTH
     Route: 048
     Dates: start: 20130916, end: 20131016

REACTIONS (1)
  - Tooth discolouration [None]
